FAERS Safety Report 9419795 (Version 1)
Quarter: 2013Q3

REPORT INFORMATION
  Report Type: Spontaneous
  Country: FR (occurrence: FR)
  Receive Date: 20130725
  Receipt Date: 20130725
  Transmission Date: 20140515
  Serious: Yes (Other)
  Sender: FDA-Public Use
  Company Number: FR-MYLANLABS-2013S1015594

PATIENT
  Age: 72 Year
  Sex: Male

DRUGS (1)
  1. WARFARIN [Suspect]
     Indication: INTERNATIONAL NORMALISED RATIO FLUCTUATION
     Route: 065
     Dates: start: 200803, end: 201010

REACTIONS (1)
  - Skin ulcer [Unknown]
